FAERS Safety Report 5409559-9 (Version None)
Quarter: 2007Q3

REPORT INFORMATION
  Report Type: 
  Country: None (occurrence: None)
  Receive Date: 20070807
  Receipt Date: 20070807
  Transmission Date: 20080115
  Serious: Yes (Hospitalization)
  Sender: FDA-Public Use
  Company Number: None

PATIENT
  Sex: Male
  Weight: 81.2 kg

DRUGS (4)
  1. METHOTREXATE [Suspect]
     Dosage: 40 MG
  2. VINCRISTINE SULFATE [Suspect]
     Dosage: 2 MG
  3. DEXAMETHASONE 0.5MG TAB [Suspect]
     Dosage: 60 MG
  4. MERCAPTOPURINE [Suspect]
     Dosage: 800 MG

REACTIONS (4)
  - FUNGAL INFECTION [None]
  - LUNG NEOPLASM [None]
  - PNEUMONIA [None]
  - SINUSITIS [None]
